FAERS Safety Report 7326425-2 (Version None)
Quarter: 2011Q1

REPORT INFORMATION
  Report Type: 
  Country: None (occurrence: None)
  Receive Date: 20110302
  Receipt Date: 20110217
  Transmission Date: 20110831
  Serious: Yes (Hospitalization)
  Sender: FDA-Public Use
  Company Number: US-SANOFI-AVENTIS-2011SA011085

PATIENT
  Age: 75 Year
  Sex: Male

DRUGS (6)
  1. COUMADIN [Suspect]
     Route: 065
     Dates: end: 20110201
  2. PLAVIX [Suspect]
     Route: 065
     Dates: end: 20110201
  3. ASPIRIN [Concomitant]
  4. ANTIHYPERTENSIVES [Concomitant]
  5. ZETIA [Concomitant]
  6. LESCOL [Concomitant]

REACTIONS (2)
  - PULMONARY EMBOLISM [None]
  - THROMBOSIS [None]
